FAERS Safety Report 24637685 (Version 3)
Quarter: 2025Q1

REPORT INFORMATION
  Report Type: Spontaneous
  Country: FR (occurrence: FR)
  Receive Date: 20241119
  Receipt Date: 20250210
  Transmission Date: 20250409
  Serious: Yes (Other)
  Sender: BAYER HEALTHCARE PHARMACEUTICALS INC.
  Company Number: FR-BAYER-2024A163735

PATIENT
  Sex: Female

DRUGS (1)
  1. KYLEENA [Suspect]
     Active Substance: LEVONORGESTREL
     Indication: Contraception
     Dosage: 17.5?G/DAY
     Route: 015
     Dates: start: 20240125

REACTIONS (5)
  - Pregnancy with contraceptive device [None]
  - Device breakage [None]
  - Drug ineffective [None]
  - Complication of device removal [None]
  - Anxiety [None]

NARRATIVE: CASE EVENT DATE: 20241102
